FAERS Safety Report 14313527 (Version 1)
Quarter: 2017Q4

REPORT INFORMATION
  Report Type: Spontaneous
  Country: IN (occurrence: IN)
  Receive Date: 20171221
  Receipt Date: 20171221
  Transmission Date: 20180321
  Serious: Yes (Other)
  Sender: FDA-Public Use
  Company Number: IN-ASTELLAS-2017US053861

PATIENT
  Age: 21 Year
  Sex: Male

DRUGS (2)
  1. MYCOPHENOLIC ACID. [Suspect]
     Active Substance: MYCOPHENOLIC ACID
     Indication: RENAL TRANSPLANT
     Route: 065
  2. TACROLIMUS. [Suspect]
     Active Substance: TACROLIMUS
     Indication: RENAL TRANSPLANT
     Dosage: UNK UNK, UNKNOWN FREQ.
     Route: 065

REACTIONS (6)
  - Kidney transplant rejection [Unknown]
  - Fungal skin infection [Recovered/Resolved]
  - Toxicity to various agents [Unknown]
  - Transplant rejection [Unknown]
  - Diabetes mellitus [Unknown]
  - Phaehyphomycosis [Recovered/Resolved]
